FAERS Safety Report 17983704 (Version 2)
Quarter: 2020Q3

REPORT INFORMATION
  Report Type: Spontaneous
  Country: CN (occurrence: CN)
  Receive Date: 20200706
  Receipt Date: 20200718
  Transmission Date: 20201103
  Serious: Yes (Life-Threatening, Hospitalization, Other)
  Sender: FDA-Public Use
  Company Number: CN-ACCORD-188652

PATIENT
  Age: 26 Year
  Sex: Male

DRUGS (6)
  1. ETOPOSIDE. [Suspect]
     Active Substance: ETOPOSIDE
     Indication: PRIMARY MEDIASTINAL LARGE B-CELL LYMPHOMA
     Dates: start: 20200117
  2. PREDNISONE. [Suspect]
     Active Substance: PREDNISONE
     Indication: PRIMARY MEDIASTINAL LARGE B-CELL LYMPHOMA
     Dates: start: 20200117
  3. VINCRISTINE [Suspect]
     Active Substance: VINCRISTINE
     Indication: PRIMARY MEDIASTINAL LARGE B-CELL LYMPHOMA
     Dates: start: 20200117
  4. CYCLOPHOSPHAMIDE/CYCLOPHOSPHAMIDE MONOHYDRATE [Suspect]
     Active Substance: CYCLOPHOSPHAMIDE
     Indication: PRIMARY MEDIASTINAL LARGE B-CELL LYMPHOMA
     Dates: start: 20200117
  5. RITUXIMAB. [Suspect]
     Active Substance: RITUXIMAB
     Indication: PRIMARY MEDIASTINAL LARGE B-CELL LYMPHOMA
     Dates: start: 20200117
  6. DOXORUBICIN [Suspect]
     Active Substance: DOXORUBICIN
     Indication: PRIMARY MEDIASTINAL LARGE B-CELL LYMPHOMA
     Dates: start: 20200117

REACTIONS (6)
  - COVID-19 [Recovered/Resolved]
  - Pneumonia mycoplasmal [Recovered/Resolved]
  - Lymphopenia [Recovered/Resolved]
  - Enterovirus infection [Recovered/Resolved]
  - Febrile neutropenia [Recovered/Resolved]
  - Coxsackie viral infection [Recovered/Resolved]

NARRATIVE: CASE EVENT DATE: 20200119
